FAERS Safety Report 23826021 (Version 1)
Quarter: 2024Q2

REPORT INFORMATION
  Report Type: Spontaneous
  Country: US (occurrence: US)
  Receive Date: 20240507
  Receipt Date: 20240507
  Transmission Date: 20240716
  Serious: No
  Sender: FDA-Public Use
  Company Number: US-UCBSA-2023060223

PATIENT
  Sex: Female
  Weight: 68.027 kg

DRUGS (7)
  1. CIMZIA [Suspect]
     Active Substance: CERTOLIZUMAB PEGOL
     Indication: Rheumatoid arthritis
     Dosage: 200 MILLIGRAM, EV 2 WEEKS(QOW)
     Route: 058
     Dates: start: 202012, end: 20231120
  2. CLOBETASOL PROPIONATE [Concomitant]
     Active Substance: CLOBETASOL PROPIONATE
     Indication: Product used for unknown indication
     Dosage: UNK
  3. HYDROCORTISONE [Concomitant]
     Active Substance: HYDROCORTISONE
     Indication: Product used for unknown indication
     Dosage: UNK
  4. ALPRAZOLAM [Concomitant]
     Active Substance: ALPRAZOLAM
     Indication: Product used for unknown indication
     Dosage: UNK
  5. TIZANIDINE HYDROCHLORIDE [Concomitant]
     Active Substance: TIZANIDINE HYDROCHLORIDE
     Indication: Product used for unknown indication
     Dosage: UNK
  6. VITAMIN D3 [Concomitant]
     Active Substance: CHOLECALCIFEROL
     Indication: Product used for unknown indication
     Dosage: UNK
  7. IBUPROFEN [Concomitant]
     Active Substance: IBUPROFEN
     Indication: Product used for unknown indication
     Dosage: UNK

REACTIONS (14)
  - Hypoaesthesia [Not Recovered/Not Resolved]
  - Paraesthesia [Not Recovered/Not Resolved]
  - Nasopharyngitis [Not Recovered/Not Resolved]
  - Pyrexia [Recovered/Resolved]
  - Migraine [Recovered/Resolved]
  - Palpitations [Not Recovered/Not Resolved]
  - Dizziness [Not Recovered/Not Resolved]
  - Throat tightness [Not Recovered/Not Resolved]
  - Feeling abnormal [Not Recovered/Not Resolved]
  - Erythema [Not Recovered/Not Resolved]
  - Feeling hot [Not Recovered/Not Resolved]
  - Chest discomfort [Not Recovered/Not Resolved]
  - Feeling cold [Not Recovered/Not Resolved]
  - Drug ineffective [Unknown]

NARRATIVE: CASE EVENT DATE: 20220101
